FAERS Safety Report 8388588-X (Version None)
Quarter: 2012Q2

REPORT INFORMATION
  Report Type: 
  Country: None (occurrence: None)
  Receive Date: 20120525
  Receipt Date: 20120522
  Transmission Date: 20120825
  Serious: Yes (Hospitalization)
  Sender: FDA-Public Use
  Company Number: PHHY2012CI035081

PATIENT
  Age: 80 Year
  Sex: Male

DRUGS (2)
  1. DILTIAZEM [Suspect]
     Indication: HYPERTENSION
     Dosage: 300 MG, UNK
  2. SIMVASTATIN [Suspect]
     Indication: HYPERCHOLESTEROLAEMIA
     Dosage: 20 MG, UNK

REACTIONS (10)
  - COUGH [None]
  - PLEURISY [None]
  - TACHYPNOEA [None]
  - CHYLOTHORAX [None]
  - DYSPNOEA [None]
  - ANAEMIA [None]
  - INFLAMMATION [None]
  - CHEST PAIN [None]
  - HYPERTRIGLYCERIDAEMIA [None]
  - PLEURAL EFFUSION [None]
